FAERS Safety Report 5698273-0 (Version None)
Quarter: 2008Q2

REPORT INFORMATION
  Report Type: 
  Country: None (occurrence: None)
  Receive Date: 20080408
  Receipt Date: 20080404
  Transmission Date: 20081010
  Serious: Yes (Other)
  Sender: FDA-Public Use
  Company Number: GB-BOEHRINGER INGELHEIM GMBH, GERMANY-2008-DE-02041GD

PATIENT
  Sex: Female

DRUGS (6)
  1. MORPHINE [Suspect]
     Indication: PAIN
  2. MORPHINE [Suspect]
     Route: 037
  3. PARACETAMOL [Suspect]
     Indication: PAIN
  4. IBUPROFEN [Suspect]
     Indication: PAIN
  5. CODEINE SUL TAB [Suspect]
     Indication: PAIN
  6. BACLOFEN [Suspect]
     Indication: PAIN
     Route: 037

REACTIONS (2)
  - DRUG INEFFECTIVE [None]
  - DRUG TOLERANCE [None]
